FAERS Safety Report 7604354-4 (Version None)
Quarter: 2011Q3

REPORT INFORMATION
  Report Type: 
  Country: None (occurrence: None)
  Receive Date: 20110712
  Receipt Date: 20110628
  Transmission Date: 20111222
  Serious: Yes (Hospitalization)
  Sender: FDA-Public Use
  Company Number: PHHY2010MX56441

PATIENT
  Sex: Female

DRUGS (4)
  1. DIOVAN HCT [Suspect]
     Indication: HYPERTENSION
     Dosage: 160 MG OF VALS AND 25 MG OF HYD, QD
     Route: 048
     Dates: start: 20090815
  2. DIABET [Concomitant]
  3. KEFLEX [Concomitant]
  4. METFORMIN HCL [Concomitant]

REACTIONS (3)
  - UTERINE MALPOSITION [None]
  - ENDOMETRIOSIS [None]
  - NEOPLASM MALIGNANT [None]
